FAERS Safety Report 11062089 (Version 1)
Quarter: 2015Q2

REPORT INFORMATION
  Report Type: Report from Study
  Country: US (occurrence: US)
  Receive Date: 20150424
  Receipt Date: 20150424
  Transmission Date: 20150821
  Serious: Yes (Life-Threatening, Hospitalization, Other)
  Sender: FDA-Public Use
  Company Number: US-BRISTOL-MYERS SQUIBB COMPANY-16487514

PATIENT
  Age: 83 Year
  Sex: Male

DRUGS (15)
  1. FOLIC ACID. [Concomitant]
     Active Substance: FOLIC ACID
     Dosage: 1 DF: 1 TABS  ADDITIONAL PRESCRIPTION INSTRUCTIONS: 5MG
     Route: 048
  2. CALCIUM [Concomitant]
     Active Substance: CALCIUM
     Dosage: 1 DF: 1 CAPS  1000MG
     Route: 048
  3. SOLU-MEDROL [Concomitant]
     Active Substance: METHYLPREDNISOLONE SODIUM SUCCINATE
     Dosage: 125 MG, INTERMITTENT
  4. PROTONIX [Concomitant]
     Active Substance: PANTOPRAZOLE SODIUM
     Dosage: UNK
     Route: 048
  5. BABY ASPIRIN [Concomitant]
     Active Substance: ASPIRIN
     Dosage: 1DF=CHEWABLE TABS
     Route: 048
  6. ELIGARD [Concomitant]
     Active Substance: LEUPROLIDE ACETATE
     Dosage: 1 DF: 1 SYRINGE  45MG SYRINGE  ADDITIONAL PRESCRIPTION INSTRUCTIONS: EVERY 6 MONTH INJECTION.
     Route: 058
  7. PREDNISONE. [Concomitant]
     Active Substance: PREDNISONE
     Indication: RASH
     Dosage: 10 MG, BID
     Route: 048
  8. LOVENOX [Concomitant]
     Active Substance: ENOXAPARIN SODIUM
  9. CENTRUM [Concomitant]
     Active Substance: VITAMINS
     Dosage: 1 DF: 1 TABS
     Route: 048
  10. ZETIA [Concomitant]
     Active Substance: EZETIMIBE
     Dosage: 1 DF: 1 TAB
     Route: 048
  11. LOMOTIL [Concomitant]
     Active Substance: ATROPINE SULFATE\DIPHENOXYLATE HYDROCHLORIDE
  12. FERROUS SULFATE [Concomitant]
     Active Substance: FERROUS SULFATE\FERROUS SULFATE, DRIED
  13. MOTRIN [Concomitant]
     Active Substance: IBUPROFEN
     Dosage: 1 DF: 1 TAB  600MG TABS
     Route: 048
  14. IPILIMUMAB [Suspect]
     Active Substance: IPILIMUMAB
     Indication: PROSTATE CANCER
     Dosage: 22FEB12-22FEB12 153 ML  14MAR12-14MAR12 151 ML
     Route: 042
     Dates: start: 20120222, end: 20120314
  15. TRIAMCINOLON E [Concomitant]
     Indication: PRURITUS
     Dosage: COMPOUND PRODUCT +  MULTI COMPONENT: TRIAMCINOLONE ACETONIDE 0.05%; VANICREAM 1 QSAD.
     Route: 061

REACTIONS (16)
  - Gastrointestinal haemorrhage [Recovered/Resolved with Sequelae]
  - Fatigue [Recovered/Resolved with Sequelae]
  - Nausea [Recovered/Resolved]
  - Ventricular tachycardia [Recovered/Resolved]
  - Colitis [Recovered/Resolved with Sequelae]
  - Diarrhoea [Recovered/Resolved with Sequelae]
  - Decreased appetite [Recovered/Resolved with Sequelae]
  - Hypotension [Recovered/Resolved]
  - Angioedema [Recovered/Resolved]
  - Cytomegalovirus gastrointestinal infection [Recovered/Resolved]
  - Dehydration [Recovered/Resolved]
  - Asthenia [Recovered/Resolved with Sequelae]
  - Atrial fibrillation [Recovered/Resolved with Sequelae]
  - Bandaemia [Recovered/Resolved]
  - Gastrointestinal necrosis [Recovered/Resolved with Sequelae]
  - Large intestine perforation [Recovered/Resolved with Sequelae]

NARRATIVE: CASE EVENT DATE: 20120321
